FAERS Safety Report 24249142 (Version 1)
Quarter: 2024Q3

REPORT INFORMATION
  Report Type: Spontaneous
  Country: US (occurrence: None)
  Receive Date: 20240823
  Receipt Date: 20240823
  Transmission Date: 20241017
  Serious: Yes (Life-Threatening, Other)
  Sender: Public
  Company Number: None

PATIENT
  Age: 66 Year
  Sex: Female
  Weight: 58.05 kg

DRUGS (18)
  1. CIPRO [Suspect]
     Active Substance: CIPROFLOXACIN HYDROCHLORIDE
     Indication: Urinary tract infection
     Dosage: 1 TABLET DAILY ORAL
     Route: 048
     Dates: start: 20230306, end: 20231205
  2. CIPRO [Suspect]
     Active Substance: CIPROFLOXACIN HYDROCHLORIDE
     Indication: Complication associated with device
  3. Right hip prosthesis [Concomitant]
  4. rt SI joint fusion bars [Concomitant]
  5. left buttock Flowonix pain pump [Concomitant]
  6. FENTANYL [Concomitant]
  7. BUPIVICAINE [Concomitant]
  8. MORPHINE [Concomitant]
  9. PRAVASTATIN [Concomitant]
  10. TRINTELLIX [Concomitant]
     Active Substance: VORTIOXETINE HYDROBROMIDE
  11. LISINOPRIL [Concomitant]
  12. CYCLOBENZAPRINE [Concomitant]
  13. Mirilax powder [Concomitant]
  14. COLACE [Concomitant]
  15. multi-vitamins [Concomitant]
  16. probiotics [Concomitant]
  17. MINERALS\VITAMINS [Concomitant]
     Active Substance: MINERALS\VITAMINS
  18. ALEVE [Concomitant]
     Active Substance: NAPROXEN SODIUM

REACTIONS (32)
  - Hip arthroplasty [None]
  - Complication associated with device [None]
  - Hip arthroplasty [None]
  - Iatrogenic injury [None]
  - Pain [None]
  - Pain [None]
  - Joint surgery [None]
  - Peripheral swelling [None]
  - Joint swelling [None]
  - Peripheral swelling [None]
  - Rash erythematous [None]
  - Rash [None]
  - Rash [None]
  - Skin lesion [None]
  - Ligament rupture [None]
  - Ligament rupture [None]
  - Headache [None]
  - Hyperhidrosis [None]
  - Stomatitis [None]
  - Arthralgia [None]
  - Orbital swelling [None]
  - Muscle spasms [None]
  - Aortic disorder [None]
  - Arterial spasm [None]
  - Tremor [None]
  - Jaw disorder [None]
  - Hypertension [None]
  - Heart rate increased [None]
  - Laboratory test interference [None]
  - Peripheral swelling [None]
  - Ligament sprain [None]
  - Pain [None]

NARRATIVE: CASE EVENT DATE: 20230428
